FAERS Safety Report 24386340 (Version 1)
Quarter: 2024Q4

REPORT INFORMATION
  Report Type: Spontaneous
  Country: CN (occurrence: CN)
  Receive Date: 20241001
  Receipt Date: 20241001
  Transmission Date: 20250114
  Serious: Yes (Hospitalization)
  Sender: BEIGENE
  Company Number: CN-BEIGENE-BGN-2024-015282

PATIENT

DRUGS (6)
  1. TISLELIZUMAB [Suspect]
     Active Substance: TISLELIZUMAB
     Indication: Lung neoplasm malignant
     Dosage: 200 MILLIGRAM D0, Q3WK
     Route: 041
     Dates: start: 20240905
  2. IFOSFAMIDE [Suspect]
     Active Substance: IFOSFAMIDE
     Indication: Lung neoplasm malignant
     Dosage: 2 GRAM D1-3, Q3WK
     Route: 041
     Dates: start: 20240906
  3. PACLITAXEL [Suspect]
     Active Substance: PACLITAXEL
     Indication: Lung neoplasm malignant
     Dosage: 400 MILLIGRAM D1, Q3WK
     Route: 041
     Dates: start: 20240906
  4. SODIUM CHLORIDE [Concomitant]
     Active Substance: SODIUM CHLORIDE
     Indication: Vehicle solution use
     Dosage: 100 MILLILITER D0, Q3WK
     Route: 041
     Dates: start: 20240905
  5. SODIUM CHLORIDE [Concomitant]
     Active Substance: SODIUM CHLORIDE
     Dosage: 80 MILLILITER D1, Q3WK
     Route: 041
     Dates: start: 20240906
  6. CALCIUM CHLORIDE\POTASSIUM CHLORIDE\SODIUM CHLORIDE [Concomitant]
     Active Substance: CALCIUM CHLORIDE\POTASSIUM CHLORIDE\SODIUM CHLORIDE
     Indication: Vehicle solution use
     Dosage: 500 MILLILITER D1-3, Q3WK
     Route: 041
     Dates: start: 20240906

REACTIONS (1)
  - Neutrophil count decreased [Recovered/Resolved]

NARRATIVE: CASE EVENT DATE: 20240919
